FAERS Safety Report 11538824 (Version 1)
Quarter: 2015Q3

REPORT INFORMATION
  Report Type: Spontaneous
  Country: US (occurrence: None)
  Receive Date: 20150922
  Receipt Date: 20150922
  Transmission Date: 20151125
  Serious: Yes (Death)
  Sender: FDA-Public Use
  Company Number: None

PATIENT
  Age: 48 Year
  Sex: Female
  Weight: 72.58 kg

DRUGS (4)
  1. PROBIOTICS [Concomitant]
     Active Substance: PROBIOTICS NOS
  2. ALLERGY EASY NO LABEL [Suspect]
     Active Substance: HOMEOPATHICS
     Indication: MYCOTIC ALLERGY
     Route: 060
     Dates: start: 20121115, end: 20141004
  3. COREG [Concomitant]
     Active Substance: CARVEDILOL
  4. XANAX [Concomitant]
     Active Substance: ALPRAZOLAM

REACTIONS (3)
  - Tooth abscess [None]
  - Anaphylactic shock [None]
  - Malaise [None]

NARRATIVE: CASE EVENT DATE: 20141015
